FAERS Safety Report 13737195 (Version 1)
Quarter: 2017Q3

REPORT INFORMATION
  Report Type: Spontaneous
  Country: US (occurrence: US)
  Receive Date: 20170710
  Receipt Date: 20170710
  Transmission Date: 20171127
  Serious: Yes (Other)
  Sender: FDA-Public Use
  Company Number: US-SAOL THERAPEUTICS-2016SAO00304

PATIENT
  Age: 39 Year
  Sex: Female

DRUGS (18)
  1. HYDROMORPHONE [Concomitant]
     Active Substance: HYDROMORPHONE
     Dosage: 4 MG, 4X/DAY
     Route: 048
  2. COMPOUNDED BACLOFEN [Suspect]
     Active Substance: BACLOFEN
     Dosage: 120 ?G, \DAY
  3. TRAZODONE [Concomitant]
     Active Substance: TRAZODONE HYDROCHLORIDE
     Dosage: 200 MG, 1X/DAY
  4. SUBSYS [Concomitant]
     Active Substance: FENTANYL
     Dosage: UNK, 4X/DAY
     Route: 060
  5. DILAUDID [Suspect]
     Active Substance: HYDROMORPHONE HYDROCHLORIDE
     Dosage: 14.009 MG, \DAY
     Dates: start: 20160623, end: 20160628
  6. LIORESAL [Suspect]
     Active Substance: BACLOFEN
     Dosage: 90 ?G, \DAY
     Dates: start: 20160628
  7. MORPHINE [Suspect]
     Active Substance: MORPHINE
     Dosage: 20 MG, \DAY
  8. ONDANSETRON [Concomitant]
     Active Substance: ONDANSETRON
     Dosage: 8 MG, 2X/DAY
  9. MIDORINE [Concomitant]
     Active Substance: MIDODRINE
     Dosage: 5 MG, 4X/DAY
     Route: 048
  10. MORPHINE [Suspect]
     Active Substance: MORPHINE
     Dosage: 15 MG, \DAY
     Dates: start: 20160628
  11. METHADONE [Concomitant]
     Active Substance: METHADONE HYDROCHLORIDE
     Dosage: 20 MG, 2X/DAY
     Route: 048
  12. EXALGO [Concomitant]
     Active Substance: HYDROMORPHONE HYDROCHLORIDE
     Dosage: 32 MG, 1X/DAY
  13. BACTRIM [Concomitant]
     Active Substance: SULFAMETHOXAZOLE\TRIMETHOPRIM
     Dosage: UNK UNK, 1X/DAY
  14. BACLOFEN. [Suspect]
     Active Substance: BACLOFEN
     Indication: BREAST CANCER METASTATIC
     Dosage: 76.949 ?G, \DAY
     Dates: start: 20160602, end: 20160623
  15. BACLOFEN. [Suspect]
     Active Substance: BACLOFEN
     Indication: POST LAMINECTOMY SYNDROME
  16. BACLOFEN. [Suspect]
     Active Substance: BACLOFEN
     Indication: PAIN
     Dosage: 98.061 ?G, \DAY
     Dates: start: 20160623
  17. DILAUDID [Suspect]
     Active Substance: HYDROMORPHONE HYDROCHLORIDE
     Dosage: 10.993 ?G, \DAY
     Dates: start: 20160602, end: 20160623
  18. XANAX [Concomitant]
     Active Substance: ALPRAZOLAM
     Dosage: 1 MG, 3X/DAY
     Route: 048

REACTIONS (4)
  - Pain [Not Recovered/Not Resolved]
  - Drug ineffective for unapproved indication [Not Recovered/Not Resolved]
  - Back injury [Not Recovered/Not Resolved]
  - Device malfunction [Recovered/Resolved]

NARRATIVE: CASE EVENT DATE: 201601
